FAERS Safety Report 5568184-X (Version None)
Quarter: 2007Q4

REPORT INFORMATION
  Report Type: 
  Country: None (occurrence: None)
  Receive Date: 20071220
  Receipt Date: 20071218
  Transmission Date: 20080405
  Serious: Yes (Life-Threatening, Hospitalization, Other)
  Sender: FDA-Public Use
  Company Number: FR-BRISTOL-MYERS SQUIBB COMPANY-14018097

PATIENT
  Age: 90 Year
  Sex: Female

DRUGS (9)
  1. COUMADIN [Suspect]
     Route: 048
     Dates: end: 20070711
  2. TANAKAN [Concomitant]
     Route: 048
  3. DOLIPRANE [Concomitant]
     Route: 048
  4. LORAZEPAM [Concomitant]
     Route: 048
  5. INEXIUM [Concomitant]
     Route: 048
  6. LASILIX [Concomitant]
     Route: 048
  7. HEMIGOXINE NATIVELLE [Concomitant]
     Route: 048
  8. STEROGYL [Concomitant]
     Route: 048
  9. POLYSILANE [Concomitant]
     Route: 048

REACTIONS (2)
  - CEREBRAL HAEMATOMA [None]
  - FALL [None]
